FAERS Safety Report 9696118 (Version 1)
Quarter: 2013Q4

REPORT INFORMATION
  Report Type: Spontaneous
  Country: CH (occurrence: CH)
  Receive Date: 20131119
  Receipt Date: 20131119
  Transmission Date: 20140711
  Serious: Yes (Hospitalization, Other)
  Sender: FDA-Public Use
  Company Number: CH-B.I. PHARMACEUTICALS,INC./RIDGEFIELD-2013-BI-36846SI

PATIENT
  Age: 84 Year
  Sex: Female
  Weight: 75 kg

DRUGS (12)
  1. SIFROL [Suspect]
     Indication: RESTLESS LEGS SYNDROME
     Dosage: 0.12 MG
     Route: 048
     Dates: end: 20130825
  2. OEDEMEX/FUROSEMIDE [Suspect]
     Indication: HYPERTENSION
     Dosage: 40 MG
     Route: 048
  3. RAMIPRIL ACTAVIS/RAMIPRIL [Concomitant]
     Indication: HYPERTENSION
     Dosage: 2.5 MG
     Route: 048
  4. BELOC/METORPOLOL TARTRATE/METOPROLOL SUCCINATE [Concomitant]
     Indication: HYPERTENSION
     Route: 048
  5. GLIMERYL MEPHA/GLIMEPIRIDE [Concomitant]
     Indication: TYPE 2 DIABETES MELLITUS
     Dosage: 4 MG
     Route: 048
  6. METFIN/METFORMIN HYDROCHLORIDE [Concomitant]
     Indication: TYPE 2 DIABETES MELLITUS
     Dosage: 1000 MG
     Route: 048
  7. ACIDUM FOLICUM STREULI/FOKIC ACID [Concomitant]
     Indication: VITAMIN B COMPLEX DEFICIENCY
     Dosage: 5 MG
     Route: 048
  8. MAGNESIUM [Concomitant]
     Dosage: DOSE PER APPLICATION 5MMOL
     Route: 048
  9. STILNOX/ZOLPIDEM TARTRATE [Concomitant]
     Indication: INSOMNIA
     Dosage: 10 MG
     Route: 048
  10. VITARUBIN/HYDROXYCOBOLAMIN ACETATE [Concomitant]
     Indication: ANAEMIA VITAMIN B12 DEFICIENCY
     Dosage: 0.0333 MG
  11. MOVICOL/SODIUM BICARBONATE POTASSIUM CHLORIDE SODIUM CHLORIDE MACROGOL [Concomitant]
     Indication: CONSTIPATION
     Route: 048
  12. BELOK ZOK [Concomitant]
     Route: 048

REACTIONS (6)
  - Hypothermia [Recovered/Resolved]
  - Inappropriate antidiuretic hormone secretion [Recovered/Resolved]
  - Hyponatraemia [Recovered/Resolved]
  - Altered state of consciousness [Recovered/Resolved]
  - Sedation [Recovered/Resolved]
  - Depressed level of consciousness [Recovered/Resolved]
